FAERS Safety Report 25480542 (Version 1)
Quarter: 2025Q2

REPORT INFORMATION
  Report Type: Spontaneous
  Country: CH (occurrence: CH)
  Receive Date: 20250625
  Receipt Date: 20250625
  Transmission Date: 20250716
  Serious: Yes (Hospitalization)
  Sender: PURDUE
  Company Number: CH-PURDUE-USA-2025-0318446

PATIENT
  Age: 56 Year
  Sex: Male

DRUGS (8)
  1. MORPHINE SULFATE [Interacting]
     Active Substance: MORPHINE SULFATE
     Indication: Product used for unknown indication
     Dosage: 100 MILLIGRAM, BID
     Route: 065
  2. ESCITALOPRAM [Interacting]
     Active Substance: ESCITALOPRAM OXALATE
     Indication: Product used for unknown indication
     Dosage: 100 MILLIGRAM, DAILY
     Route: 065
  3. XANAX [Interacting]
     Active Substance: ALPRAZOLAM
     Indication: Product used for unknown indication
     Dosage: 1.5 MILLIGRAM, BID
     Route: 065
  4. XANAX [Interacting]
     Active Substance: ALPRAZOLAM
     Route: 065
  5. RISPERIDONE [Interacting]
     Active Substance: RISPERIDONE
     Indication: Product used for unknown indication
     Route: 065
  6. METFORMIN [Interacting]
     Active Substance: METFORMIN HYDROCHLORIDE
     Indication: Product used for unknown indication
     Route: 065
  7. ELIQUIS [Interacting]
     Active Substance: APIXABAN
     Indication: Product used for unknown indication
     Dosage: 2.5 MILLIGRAM, BID
     Route: 065
     Dates: start: 2022
  8. METHYLPHENIDATE HYDROCHLORIDE [Interacting]
     Active Substance: METHYLPHENIDATE HYDROCHLORIDE
     Indication: Product used for unknown indication
     Dosage: 10 MILLIGRAM, TID
     Route: 065

REACTIONS (8)
  - Respiratory failure [Recovering/Resolving]
  - Psychomotor retardation [Recovering/Resolving]
  - Lacrimation increased [Recovering/Resolving]
  - Miosis [Recovering/Resolving]
  - Bradycardia [Recovered/Resolved]
  - Urinary retention [Recovering/Resolving]
  - Drug interaction [Recovering/Resolving]
  - Drug interaction [Recovering/Resolving]

NARRATIVE: CASE EVENT DATE: 20250523
